FAERS Safety Report 5368569-0 (Version None)
Quarter: 2007Q2

REPORT INFORMATION
  Report Type: 
  Country: None (occurrence: None)
  Receive Date: 20070625
  Receipt Date: 20070618
  Transmission Date: 20071010
  Serious: Yes (Hospitalization)
  Sender: FDA-Public Use
  Company Number: FR-AVENTIS-200712035FR

PATIENT
  Age: 74 Year
  Sex: Female

DRUGS (5)
  1. LOVENOX [Suspect]
     Indication: DRUG USE FOR UNKNOWN INDICATION
     Route: 058
     Dates: start: 20070418
  2. SELOKEN                            /00376902/ [Suspect]
     Route: 048
     Dates: start: 20070402
  3. CIFLOX                             /00697201/ [Suspect]
     Route: 048
     Dates: start: 20070504
  4. ROCEPHIN [Suspect]
     Route: 042
     Dates: start: 20070504, end: 20070525
  5. SKENAN [Suspect]
     Route: 048
     Dates: start: 20070502, end: 20070520

REACTIONS (1)
  - AGRANULOCYTOSIS [None]
